FAERS Safety Report 12364235 (Version 2)
Quarter: 2016Q3

REPORT INFORMATION
  Report Type: Spontaneous
  Country: US (occurrence: US)
  Receive Date: 20160512
  Receipt Date: 20160729
  Transmission Date: 20161109
  Serious: Yes (Hospitalization, Other)
  Sender: FDA-Public Use
  Company Number: US-009507513-1605USA003016

PATIENT
  Age: 51 Year
  Sex: Female
  Weight: 92 kg

DRUGS (1)
  1. CUBICIN [Suspect]
     Active Substance: DAPTOMYCIN
     Indication: DEVICE RELATED INFECTION
     Dosage: 8 ML/KG DURATION OF PLAN OF SIX WEEKS

REACTIONS (1)
  - Rhabdomyolysis [Unknown]
